FAERS Safety Report 8933943 (Version 3)
Quarter: 2013Q1

REPORT INFORMATION
  Report Type: Report from Study
  Country: US (occurrence: US)
  Receive Date: 20121129
  Receipt Date: 20130222
  Transmission Date: 20140127
  Serious: Yes (Hospitalization, Other)
  Sender: FDA-Public Use
  Company Number: US-ABBOTT-12P-163-0997572-00

PATIENT
  Age: 50 Year
  Sex: Female

DRUGS (7)
  1. HUMIRA PEN [Suspect]
     Indication: CROHN^S DISEASE
     Dosage: LOADING DOSE
     Dates: start: 20121009
  2. MORPHINE [Suspect]
     Indication: PAIN
  3. EFFEXOR [Concomitant]
     Indication: DEPRESSION
     Dosage: DAILY
  4. WELLBUTRIN [Concomitant]
     Indication: DEPRESSION
     Dosage: DAILY
  5. UNKNOWN MEDICATIONS [Concomitant]
     Indication: HYPERTENSION
     Dosage: DAILY
  6. UNKNOWN MEDICATIONS [Concomitant]
     Indication: HYPOTHYROIDISM
  7. THYROXINE [Concomitant]
     Indication: HYPOTHYROIDISM

REACTIONS (6)
  - Gallbladder disorder [Recovered/Resolved]
  - Abdominal pain upper [Not Recovered/Not Resolved]
  - Cholelithiasis [Not Recovered/Not Resolved]
  - Dyspnoea [Unknown]
  - Feeling abnormal [Unknown]
  - Inappropriate schedule of drug administration [Unknown]
